FAERS Safety Report 6160541-6 (Version None)
Quarter: 2009Q2

REPORT INFORMATION
  Report Type: 
  Country: None (occurrence: None)
  Receive Date: 20090415
  Receipt Date: 20090415
  Transmission Date: 20091009
  Serious: Yes (Other)
  Sender: FDA-Public Use
  Company Number: None

PATIENT
  Age: 72 Year
  Sex: Female
  Weight: 57.6068 kg

DRUGS (1)
  1. NASONEX [Suspect]
     Indication: NASAL DISORDER
     Dosage: TWO PUFFS IN EACH NOSTRIL DAILY NASAL USED ONLY ONCE
     Route: 045
     Dates: start: 20080117, end: 20080117

REACTIONS (4)
  - DRUG EFFECT DECREASED [None]
  - DYSPNOEA [None]
  - NASAL DISORDER [None]
  - SWELLING [None]
